FAERS Safety Report 6651965-9 (Version None)
Quarter: 2010Q1

REPORT INFORMATION
  Report Type: 
  Country: None (occurrence: None)
  Receive Date: 20100325
  Receipt Date: 20100322
  Transmission Date: 20100710
  Serious: Yes (Death)
  Sender: FDA-Public Use
  Company Number: PHHY2010CA15998

PATIENT
  Sex: Female

DRUGS (10)
  1. ACLASTA [Suspect]
     Indication: OSTEOPOROSIS
     Dosage: UNK
     Route: 042
     Dates: start: 20090311
  2. HEPARIN [Concomitant]
     Dosage: 100 U/ML, 3MTH
     Dates: start: 20091229
  3. DICLOFENAC [Concomitant]
     Dosage: 1 GTT, Q4H (PRN)
     Dates: start: 20090521
  4. ZOPICLONE [Concomitant]
     Dosage: 7.5 MG/DAY 3MTH
     Dates: start: 20090521
  5. AROMASIN [Concomitant]
     Dosage: 25 MG, 1 TAB QPM 3 MTH
     Dates: start: 20090521
  6. COREG [Concomitant]
     Dosage: 25 MG, BID 3MTH
     Dates: start: 20090521
  7. ALTACE [Concomitant]
     Dosage: 5 MG, BID 3MTH
     Dates: start: 20090521
  8. EFFEXOR XR [Concomitant]
     Dosage: 150 MG, QD 3MTH
     Dates: start: 20090521
  9. SYNTHROID [Concomitant]
     Dosage: 0.05 MG, QD 3MTH
     Dates: start: 20090521
  10. CLONAZEPAM [Concomitant]
     Dosage: 0.5 MG, 1-2 TAB HS (PRN)
     Dates: start: 20090521

REACTIONS (2)
  - CARDIAC FAILURE [None]
  - MALIGNANT NEOPLASM PROGRESSION [None]
